FAERS Safety Report 6428687-2 (Version None)
Quarter: 2009Q4

REPORT INFORMATION
  Report Type: 
  Country: None (occurrence: None)
  Receive Date: 20091105
  Receipt Date: 20091027
  Transmission Date: 20100525
  Serious: Yes (Hospitalization)
  Sender: FDA-Public Use
  Company Number: US-BAYER-200937769NA

PATIENT
  Age: 23 Year
  Sex: Male

DRUGS (24)
  1. FLUDARA [Suspect]
     Indication: ACUTE MYELOID LEUKAEMIA
     Dosage: TOTAL DAILY DOSE: 62 MG  UNIT DOSE: 30 MG/M2
     Route: 042
     Dates: start: 20090723, end: 20090726
  2. CLOFARABINE [Suspect]
     Indication: ACUTE MYELOID LEUKAEMIA
     Dosage: TOTAL DAILY DOSE: 21 MG  UNIT DOSE: 10 MG/M2
     Route: 042
     Dates: start: 20090723, end: 20090726
  3. BUSULFAN [Suspect]
     Indication: ACUTE MYELOID LEUKAEMIA
     Dosage: TOTAL DAILY DOSE: 299 MG
     Route: 042
     Dates: start: 20090723, end: 20090724
  4. BUSULFAN [Suspect]
     Dosage: TOTAL DAILY DOSE: 373 MG
     Route: 042
     Dates: start: 20090725, end: 20090726
  5. ACYCLOVIR SODIUM [Concomitant]
     Route: 042
  6. ACYCLOVIR SODIUM [Concomitant]
     Route: 042
  7. ANIDULAFUNGIN [Concomitant]
     Route: 042
  8. AZTREONAM IN DEXTROSE [Concomitant]
     Dosage: EVERY 12 HOURS
     Route: 042
  9. CADEXOMER IODINE [Concomitant]
  10. CYCLOSPORINE [Concomitant]
     Dosage: EVERY 12 HOURS
     Route: 042
  11. DAPTOMYCIN [Concomitant]
     Dosage: Q48H
     Route: 042
  12. HEPARIN [Concomitant]
     Dosage: TOTAL DAILY DOSE: 2000 U
     Route: 042
  13. HEXACHLOROPHENE [Concomitant]
  14. HYDROCORTISONE SOD SUCC [Concomitant]
     Route: 042
  15. INSULIN DETEMIR [Concomitant]
     Dosage: EVERY 12 HOURS
     Route: 058
  16. HUMULIN R [Concomitant]
     Dosage: SLIDING SCALE
     Route: 058
  17. LEVALBUTEROL HCL [Concomitant]
     Dosage: EVERY 8 HOURS
     Route: 055
  18. METHYLPREDNISOLONE SOD SUCC [Concomitant]
     Dosage: EVERY 6 HOURS
     Route: 042
  19. PANTOPRAZOLE SODIUM [Concomitant]
     Route: 042
  20. PHYTONADIONE [Concomitant]
     Dosage: Q7DAY
  21. PROBENECID [Concomitant]
     Dosage: EVERY 6 HOURS
     Route: 048
  22. SODIUM CHLORIDE [Concomitant]
     Dosage: TOTAL DAILY DOSE: 500 ML
     Route: 042
  23. TIGECYCLINE [Concomitant]
     Dosage: EVERY 12 HOURS
     Route: 042
  24. URSODIOL [Concomitant]
     Dosage: BY TUBE

REACTIONS (4)
  - ACUTE GRAFT VERSUS HOST DISEASE [None]
  - HERPES OPHTHALMIC [None]
  - RENAL FAILURE ACUTE [None]
  - RESPIRATORY FAILURE [None]
